FAERS Safety Report 9267173 (Version 2)
Quarter: 2013Q3

REPORT INFORMATION
  Report Type: Spontaneous
  Country: TR (occurrence: TR)
  Receive Date: 20130502
  Receipt Date: 20130730
  Transmission Date: 20140515
  Serious: Yes (Other)
  Sender: FDA-Public Use
  Company Number: TR-OTSUKA-JP-2013-11188

PATIENT
  Sex: Male

DRUGS (2)
  1. SAMSCA [Suspect]
     Indication: CARDIAC FAILURE
     Dosage: 1 DF DOSAGE FORM, DAILY DOSE
     Route: 048
     Dates: start: 20130329, end: 20130330
  2. SAMSCA [Suspect]
     Indication: HYPONATRAEMIA

REACTIONS (1)
  - Rapid correction of hyponatraemia [Recovered/Resolved]
